FAERS Safety Report 7919880-8 (Version None)
Quarter: 2011Q4

REPORT INFORMATION
  Report Type: 
  Country: None (occurrence: None)
  Receive Date: 20111117
  Receipt Date: 20111107
  Transmission Date: 20120403
  Serious: Yes (Hospitalization, Other)
  Sender: FDA-Public Use
  Company Number: US-BAYER-2011-082056

PATIENT
  Age: 22 Year
  Sex: Female
  Weight: 63 kg

DRUGS (8)
  1. YAZ [Suspect]
     Indication: PREMENSTRUAL SYNDROME
  2. ONDANSETRON [Concomitant]
     Dosage: 4 MG, UNK
     Dates: start: 20100606
  3. ACETAMINOPHEN W/ PROPOXYPHENE HCL [Concomitant]
     Dosage: UNK
     Route: 048
     Dates: start: 20100606
  4. PROMETHAZINE [Concomitant]
     Dosage: 25 MG, UNK
     Route: 048
     Dates: start: 20100606
  5. YASMIN [Suspect]
     Indication: ACNE
     Dosage: UNK
     Dates: start: 20021101, end: 20060101
  6. YAZ [Suspect]
     Indication: ACNE
     Dosage: UNK
     Dates: start: 20070101, end: 20100101
  7. YASMIN [Suspect]
     Indication: PREMENSTRUAL SYNDROME
  8. CENTRALLY ACTING SYMPATHOMIMETICS [Concomitant]
     Dosage: 40 MG, UNK
     Route: 048
     Dates: start: 20100609

REACTIONS (10)
  - PULMONARY EMBOLISM [None]
  - BRONCHIAL HYPERREACTIVITY [None]
  - COUGH [None]
  - ATRIAL SEPTAL DEFECT [None]
  - DYSPNOEA [None]
  - LENTIGO [None]
  - CARDIAC SEPTAL DEFECT [None]
  - CHEST PAIN [None]
  - HEART RATE IRREGULAR [None]
  - HEPATIC MASS [None]
